FAERS Safety Report 21148044 (Version 2)
Quarter: 2022Q3

REPORT INFORMATION
  Report Type: Other
  Country: KR (occurrence: None)
  Receive Date: 20220729
  Receipt Date: 20220804
  Transmission Date: 20221027
  Serious: Yes (Hospitalization, Other)
  Sender: FDA-Public Use
  Company Number: KR-ROCHE-3137840

PATIENT
  Age: 58 Year
  Sex: Female
  Weight: 58.2 kg

DRUGS (30)
  1. ATEZOLIZUMAB [Suspect]
     Active Substance: ATEZOLIZUMAB
     Indication: Non-small cell lung cancer metastatic
     Dosage: ON 22/JAN/2022, 15/FEB/2021, 08/MAR/2021, 29/MAR/2021, 19/APR/2021, 10/MAY/2021, 03/JUN/2021, 24/JUN
     Route: 041
  2. PLASOL [Concomitant]
     Dates: start: 20210312, end: 20210315
  3. PLASOL [Concomitant]
     Route: 042
     Dates: start: 20210426, end: 20210507
  4. TARGIN PR [Concomitant]
     Indication: Cancer pain
     Dosage: 1T
     Route: 048
     Dates: start: 20210322, end: 20210511
  5. PENIRAMIN [Concomitant]
     Dosage: 1A
     Route: 042
     Dates: start: 20210426, end: 20210426
  6. PENIRAMIN [Concomitant]
     Dosage: 1A IV
     Route: 042
     Dates: start: 20210513, end: 20210513
  7. AMARYL [Concomitant]
     Active Substance: GLIMEPIRIDE
     Indication: Diabetes mellitus
     Dosage: 0.25
     Route: 048
     Dates: start: 20201014, end: 20210510
  8. JANUVIA [Concomitant]
     Active Substance: SITAGLIPTIN PHOSPHATE
     Indication: Diabetes mellitus
     Dosage: 0.5 T
     Route: 048
     Dates: start: 20201014, end: 20210510
  9. LYRICA [Concomitant]
     Active Substance: PREGABALIN
     Indication: Cancer pain
     Dosage: 1C
     Route: 048
     Dates: start: 20210503, end: 20210511
  10. FENOFIBRATE [Concomitant]
     Active Substance: FENOFIBRATE
     Indication: Hyperlipidaemia
     Dosage: 1T
     Route: 048
     Dates: start: 20201014, end: 20210510
  11. SYNATURA [Concomitant]
     Dosage: 1PACK
     Route: 048
     Dates: start: 20210429, end: 20210510
  12. ITOPRIDE [Concomitant]
     Active Substance: ITOPRIDE
     Dosage: 1T
     Route: 048
     Dates: start: 20210128, end: 20210510
  13. JEIL ALMAX [Concomitant]
     Dosage: 1T PO TID
     Dates: start: 20201228, end: 20210510
  14. ACETYLCYSTEINE [Concomitant]
     Active Substance: ACETYLCYSTEINE
     Indication: Pneumonia
     Dosage: 1T
     Route: 048
     Dates: start: 20201019, end: 20210510
  15. ACETYLCYSTEINE [Concomitant]
     Active Substance: ACETYLCYSTEINE
     Dates: start: 20210511, end: 20210515
  16. OXYCODONE HYDROCHLORIDE [Concomitant]
     Active Substance: OXYCODONE HYDROCHLORIDE
     Indication: Cancer pain
     Dosage: 1T
     Route: 048
     Dates: start: 20210315, end: 20210510
  17. FENTANYL [Concomitant]
     Active Substance: FENTANYL
     Indication: Cancer pain
     Dosage: 1PATCH
     Route: 062
     Dates: start: 20210312, end: 20210511
  18. CODEINE [Concomitant]
     Active Substance: CODEINE
     Indication: Cancer pain
     Dosage: 1T
     Route: 048
     Dates: start: 20210427, end: 20210510
  19. AKYNZEO [Concomitant]
     Dosage: 1T
     Route: 048
     Dates: start: 20210504, end: 20210504
  20. VECARON [Concomitant]
     Indication: Cancer pain
     Route: 042
     Dates: start: 20210511, end: 20210513
  21. TRANEXAMIC ACID [Concomitant]
     Active Substance: TRANEXAMIC ACID
     Indication: Haemorrhage
     Dosage: 1A
     Route: 042
     Dates: start: 20210508, end: 20210516
  22. HYDROCORTISONE SODIUM SUCCINATE [Concomitant]
     Active Substance: HYDROCORTISONE SODIUM SUCCINATE
     Dosage: 1A
     Route: 042
     Dates: start: 20210513, end: 20210513
  23. ELECTROLYTES NOS\MINERALS [Concomitant]
     Active Substance: ELECTROLYTES NOS\MINERALS
     Dosage: 1A
     Route: 042
     Dates: start: 20210514, end: 20210514
  24. AMINO ACIDS\DEXTROSE\ELECTROLYTES NOS\SOYBEAN OIL [Concomitant]
     Active Substance: AMINO ACIDS\DEXTROSE\ELECTROLYTES NOS\SOYBEAN OIL
     Dosage: 1BOTTLE
     Route: 042
     Dates: start: 20210514, end: 20210515
  25. PROFA [Concomitant]
     Indication: Cancer pain
     Route: 042
     Dates: start: 20210515, end: 20210515
  26. FOLIC ACID [Concomitant]
     Active Substance: FOLIC ACID
     Route: 048
     Dates: start: 20210312, end: 20210510
  27. PAMISOL [PAMIDRONATE DISODIUM] [Concomitant]
     Dates: start: 20210121, end: 20210711
  28. MICARDIS [Concomitant]
     Active Substance: TELMISARTAN
     Indication: Hypertension
     Dosage: DOSE 1 TB
     Route: 048
     Dates: start: 20200829
  29. CRESTOR [Concomitant]
     Active Substance: ROSUVASTATIN CALCIUM
     Indication: Hyperlipidaemia
     Dosage: 1 T
     Route: 048
     Dates: start: 20200904
  30. VITAMINS [Concomitant]
     Active Substance: VITAMINS
     Dates: start: 20210121

REACTIONS (9)
  - Neutropenia [Recovered/Resolved]
  - Sepsis [Recovered/Resolved]
  - Dizziness [Not Recovered/Not Resolved]
  - Diarrhoea [Recovered/Resolved]
  - Haemorrhage [Not Recovered/Not Resolved]
  - Pyrexia [Recovered/Resolved]
  - Face oedema [Recovered/Resolved]
  - Bone contusion [Not Recovered/Not Resolved]
  - Cystitis [Recovered/Resolved]

NARRATIVE: CASE EVENT DATE: 20210207
